FAERS Safety Report 4417402-X (Version None)
Quarter: 2004Q2

REPORT INFORMATION
  Report Type: 
  Country: None (occurrence: None)
  Receive Date: 20040629
  Receipt Date: 20040414
  Transmission Date: 20050107
  Serious: Yes (Hospitalization, Other)
  Sender: FDA-Public Use
  Company Number: USA040464915

PATIENT
  Age: 60 Year
  Sex: Female
  Weight: 88 kg

DRUGS (14)
  1. HUMALOG [Suspect]
  2. LISINOPRIL [Concomitant]
  3. AVANDIA [Concomitant]
  4. PLAVIX [Concomitant]
  5. PLENDIL [Concomitant]
  6. FUROSEMIDE [Concomitant]
  7. KLOR-CON [Concomitant]
  8. CALCIUM CARBONATE [Concomitant]
  9. PRANDIN [Concomitant]
  10. ASPIRIN [Concomitant]
  11. LIPITOR [Concomitant]
  12. LANTUS [Concomitant]
  13. ADVAIR DISKUS 100/50 [Concomitant]
  14. ATROVENT [Concomitant]

REACTIONS (3)
  - ARTERIAL BYPASS OPERATION [None]
  - MYOCARDIAL INFARCTION [None]
  - STENT PLACEMENT [None]
